FAERS Safety Report 7152543-8 (Version None)
Quarter: 2010Q4

REPORT INFORMATION
  Report Type: 
  Country: None (occurrence: None)
  Receive Date: 20101209
  Receipt Date: 20101209
  Transmission Date: 20110411
  Serious: Yes (Life-Threatening)
  Sender: FDA-Public Use
  Company Number: None

PATIENT
  Age: 58 Year
  Sex: Male
  Weight: 65.7716 kg

DRUGS (1)
  1. ABELCET [Suspect]
     Indication: FUNGAL INFECTION
     Dosage: 100 MG DAILY IV DRIP
     Route: 041
     Dates: start: 20101112, end: 20101113

REACTIONS (3)
  - ACUTE MYOCARDIAL INFARCTION [None]
  - CHILLS [None]
  - NERVOUSNESS [None]
